FAERS Safety Report 6016607-4 (Version None)
Quarter: 2008Q4

REPORT INFORMATION
  Report Type: 
  Country: None (occurrence: None)
  Receive Date: 20081222
  Receipt Date: 20081211
  Transmission Date: 20090506
  Serious: Yes (Other)
  Sender: FDA-Public Use
  Company Number: PHHY2008US25940

PATIENT
  Sex: Female

DRUGS (6)
  1. TASIGNA [Suspect]
     Dosage: 400 MG, BID
     Route: 048
     Dates: start: 20080902, end: 20080901
  2. ZOCOR [Concomitant]
  3. PROPRANOLOL [Concomitant]
     Indication: HYPERTENSION
  4. LANOXIN [Concomitant]
  5. ASPIRIN [Concomitant]
  6. ALBUTEROL [Concomitant]

REACTIONS (9)
  - DYSPNOEA [None]
  - FLUID RETENTION [None]
  - HEART RATE INCREASED [None]
  - OEDEMA MOUTH [None]
  - OEDEMA PERIPHERAL [None]
  - PLEURAL EFFUSION [None]
  - PULMONARY CONGESTION [None]
  - SINUS TACHYCARDIA [None]
  - SWELLING FACE [None]
